FAERS Safety Report 19660400 (Version 1)
Quarter: 2021Q3

REPORT INFORMATION
  Report Type: Spontaneous
  Country: CN (occurrence: CN)
  Receive Date: 20210805
  Receipt Date: 20210805
  Transmission Date: 20211014
  Serious: Yes (Other)
  Sender: FDA-Public Use
  Company Number: CN-AMGEN-CHNNI2021119304

PATIENT

DRUGS (1)
  1. GRAN [Suspect]
     Active Substance: FILGRASTIM
     Indication: PRODUCT USED FOR UNKNOWN INDICATION
     Dosage: UNK
     Route: 058

REACTIONS (46)
  - Dermatitis [Unknown]
  - Tachypnoea [Unknown]
  - Back pain [Unknown]
  - Chest pain [Unknown]
  - Bone pain [Unknown]
  - Agitation [Unknown]
  - Pruritus [Unknown]
  - Restlessness [Unknown]
  - Chest discomfort [Unknown]
  - Musculoskeletal pain [Unknown]
  - Myelosuppression [Unknown]
  - Grip strength decreased [Unknown]
  - Suffocation feeling [Unknown]
  - Tic [Unknown]
  - Micturition disorder [Unknown]
  - Dizziness [Unknown]
  - Abdominal pain [Unknown]
  - Abdominal distension [Unknown]
  - Vomiting [Unknown]
  - Dyspnoea [Unknown]
  - Bronchospasm [Unknown]
  - Rash erythematous [Unknown]
  - Decreased appetite [Unknown]
  - Pyrexia [Unknown]
  - Epistaxis [Unknown]
  - Temperature intolerance [Unknown]
  - Rash [Unknown]
  - Oedema peripheral [Unknown]
  - Nausea [Unknown]
  - Anaphylactic shock [Unknown]
  - Hypersensitivity [Unknown]
  - Sensation of blood flow [Unknown]
  - Dyspepsia [Unknown]
  - Injection site erythema [Unknown]
  - Urticaria [Unknown]
  - Leukocytosis [Unknown]
  - Headache [Unknown]
  - Asthenia [Unknown]
  - Shock [Unknown]
  - Flushing [Unknown]
  - Mental disorder [Unknown]
  - Palpitations [Unknown]
  - Pain [Unknown]
  - Pain in extremity [Unknown]
  - Muscle spasms [Unknown]
  - Malaise [Unknown]
